FAERS Safety Report 12432452 (Version 3)
Quarter: 2017Q2

REPORT INFORMATION
  Report Type: Spontaneous
  Country: US (occurrence: US)
  Receive Date: 20160603
  Receipt Date: 20170525
  Transmission Date: 20170830
  Serious: No
  Sender: FDA-Public Use
  Company Number: US-GLAXOSMITHKLINE-US2016077931

PATIENT

DRUGS (3)
  1. EXCEDRIN MIGRAINE [Suspect]
     Active Substance: ACETAMINOPHEN\ASPIRIN\CAFFEINE
     Indication: PAIN
  2. EXCEDRIN EXTRA STRENGTH [Suspect]
     Active Substance: ACETAMINOPHEN\ASPIRIN\CAFFEINE
     Indication: PAIN
  3. TEGRETOL [Suspect]
     Active Substance: CARBAMAZEPINE
     Indication: PRODUCT USED FOR UNKNOWN INDICATION

REACTIONS (15)
  - Panic attack [Unknown]
  - Headache [Unknown]
  - Disturbance in attention [Unknown]
  - Drug ineffective [Unknown]
  - Asthenia [Unknown]
  - Anxiety [Unknown]
  - Dizziness [Unknown]
  - Abdominal pain [Unknown]
  - Decreased appetite [Unknown]
  - Pain [Unknown]
  - Crying [Unknown]
  - Contraindicated product administered [Unknown]
  - Loss of personal independence in daily activities [Unknown]
  - Dyspnoea [Unknown]
  - Feeling abnormal [Unknown]
